FAERS Safety Report 8304100-5 (Version None)
Quarter: 2012Q2

REPORT INFORMATION
  Report Type: 
  Country: None (occurrence: None)
  Receive Date: 20120423
  Receipt Date: 20120416
  Transmission Date: 20120825
  Serious: No
  Sender: FDA-Public Use
  Company Number: US-BAYER-2012-038817

PATIENT
  Age: 58 Year
  Sex: Male
  Weight: 54 kg

DRUGS (4)
  1. FLAXSEED OIL [Concomitant]
  2. VITAMIN B-12 [Concomitant]
  3. GLUCOSAMINE [Concomitant]
  4. ALEVE (CAPLET) [Suspect]
     Dosage: 1 U, BID
     Route: 048
     Dates: start: 20120410, end: 20120415

REACTIONS (1)
  - CONSTIPATION [None]
